FAERS Safety Report 5311966-X (Version None)
Quarter: 2007Q2

REPORT INFORMATION
  Report Type: 
  Country: None (occurrence: None)
  Receive Date: 20070430
  Receipt Date: 20060504
  Transmission Date: 20071010
  Serious: No
  Sender: FDA-Public Use
  Company Number: 2006UW08869

PATIENT
  Age: 43 Year
  Sex: Female
  Weight: 86.2 kg

DRUGS (8)
  1. NEXIUM [Suspect]
     Indication: GASTRITIS
     Route: 048
  2. NEXIUM [Suspect]
     Indication: HIATUS HERNIA
     Route: 048
  3. NEXIUM [Suspect]
     Indication: REFLUX OESOPHAGITIS
     Route: 048
  4. LIPITOR [Concomitant]
  5. TRAZODONE HCL [Concomitant]
  6. PROZAC [Concomitant]
  7. LEVOTHROID [Concomitant]
  8. IRON [Concomitant]

REACTIONS (3)
  - EAR PAIN [None]
  - PAIN IN JAW [None]
  - PHARYNGOLARYNGEAL PAIN [None]
